FAERS Safety Report 15942604 (Version 1)
Quarter: 2019Q1

REPORT INFORMATION
  Report Type: Spontaneous
  Country: FR (occurrence: FR)
  Receive Date: 20190210
  Receipt Date: 20190210
  Transmission Date: 20190417
  Serious: Yes (Other)
  Sender: FDA-Public Use
  Company Number: PHHY2018FR165876

PATIENT
  Age: 82 Year
  Sex: Male

DRUGS (6)
  1. DEXAMETHASONE. [Suspect]
     Active Substance: DEXAMETHASONE
     Dosage: 0.7 MG, ONCE/SINGLE
     Route: 031
     Dates: start: 20171219, end: 20171219
  2. DEXAMETHASONE. [Suspect]
     Active Substance: DEXAMETHASONE
     Dosage: 0.7 MG, ONCE/SINGLE
     Route: 031
     Dates: start: 20170831, end: 20170831
  3. DEXAMETHASONE. [Suspect]
     Active Substance: DEXAMETHASONE
     Dosage: 0.7 MG, ONCE/SINGLE
     Route: 031
     Dates: start: 20161104, end: 20161104
  4. DEXAMETHASONE. [Suspect]
     Active Substance: DEXAMETHASONE
     Dosage: 0.7 MG, ONCE/SINGLE
     Route: 031
     Dates: start: 20180518, end: 20180712
  5. DEXAMETHASONE. [Suspect]
     Active Substance: DEXAMETHASONE
     Dosage: 0.7 MG, ONCE/SINGLE
     Route: 031
     Dates: start: 20170411, end: 20170411
  6. DEXAMETHASONE. [Suspect]
     Active Substance: DEXAMETHASONE
     Indication: DIABETIC RETINAL OEDEMA
     Dosage: 0.7 MG, ONCE/SINGLE
     Route: 031
     Dates: start: 20160630, end: 20160630

REACTIONS (3)
  - Ocular hypertension [Recovered/Resolved]
  - Complication associated with device [Unknown]
  - Device dislocation [Recovered/Resolved with Sequelae]
